FAERS Safety Report 9335660 (Version 1)
Quarter: 2013Q2

REPORT INFORMATION
  Report Type: Spontaneous
  Country: GR (occurrence: GR)
  Receive Date: 20130605
  Receipt Date: 20130605
  Transmission Date: 20140414
  Serious: Yes (Other)
  Sender: FDA-Public Use
  Company Number: GR-MERCK-1305GRC017184

PATIENT
  Age: 55 Year
  Sex: Male
  Weight: 90 kg

DRUGS (2)
  1. EZETROL [Suspect]
     Indication: DYSLIPIDAEMIA
     Route: 048
     Dates: start: 20130416, end: 20130420
  2. LEPUR [Concomitant]
     Dosage: UNK

REACTIONS (1)
  - Erectile dysfunction [Recovered/Resolved]
